FAERS Safety Report 25559129 (Version 1)
Quarter: 2025Q3

REPORT INFORMATION
  Report Type: Spontaneous
  Country: US (occurrence: US)
  Receive Date: 20250715
  Receipt Date: 20250715
  Transmission Date: 20251021
  Serious: No
  Sender: NOVO NORDISK
  Company Number: US-NOVOPROD-1392893

PATIENT
  Sex: Female

DRUGS (1)
  1. OZEMPIC [Suspect]
     Active Substance: SEMAGLUTIDE
     Indication: Diabetes mellitus
     Dosage: 0.5 MG, QW
     Dates: start: 20241217

REACTIONS (5)
  - Tremor [Unknown]
  - Illness [Unknown]
  - Wrong technique in product usage process [Not Recovered/Not Resolved]
  - Product odour abnormal [Unknown]
  - Device leakage [Unknown]
